FAERS Safety Report 8947561 (Version 3)
Quarter: 2013Q2

REPORT INFORMATION
  Report Type: Report from Study
  Country: US (occurrence: US)
  Receive Date: 20121204
  Receipt Date: 20130411
  Transmission Date: 20140414
  Serious: Yes (Hospitalization)
  Sender: FDA-Public Use
  Company Number: US-ABBOTT-12P-163-1014185-00

PATIENT
  Sex: Male
  Weight: 65.83 kg

DRUGS (11)
  1. HUMIRA [Suspect]
     Indication: CROHN^S DISEASE
     Dates: end: 2007
  2. HUMIRA [Suspect]
     Dates: start: 201211
  3. LOPERAMIDE [Concomitant]
     Indication: GASTROINTESTINAL HYPERMOTILITY
     Route: 048
  4. LOMOTIL [Concomitant]
     Indication: GASTROINTESTINAL HYPERMOTILITY
     Route: 048
  5. NEXIUM [Concomitant]
     Indication: GASTROOESOPHAGEAL REFLUX DISEASE
     Route: 048
  6. PROMETHAZINE [Concomitant]
     Indication: NAUSEA
  7. ATENOLOL [Concomitant]
     Indication: TACHYCARDIA
     Route: 048
  8. XANAX [Concomitant]
     Indication: ANXIETY
  9. XANAX [Concomitant]
     Indication: POST-TRAUMATIC STRESS DISORDER
  10. AMBIEN [Concomitant]
     Indication: INSOMNIA
     Dosage: AT BEDTIME
     Route: 048
  11. CYPROHEPTADINE [Concomitant]
     Indication: ANTICOAGULANT THERAPY

REACTIONS (2)
  - Frequent bowel movements [Not Recovered/Not Resolved]
  - Abdominal pain [Not Recovered/Not Resolved]
